FAERS Safety Report 8849497 (Version 1)
Quarter: 2012Q4

REPORT INFORMATION
  Report Type: 
  Country: NL (occurrence: NL)
  Receive Date: 20121019
  Receipt Date: 20121019
  Transmission Date: 20130627
  Serious: Yes (Other)
  Sender: FDA-Public Use
  Company Number: PHHY2012NL090425

PATIENT
  Age: 36 Year
  Sex: Female

DRUGS (5)
  1. 5-FLUOROURACIL [Suspect]
     Dosage: 500 mg/m2, UNK
  2. EPIRUBICIN [Suspect]
     Dosage: 90 mg/m2, UNK
  3. CYCLOPHOSPHAMIDE [Suspect]
     Dosage: 500 mg/m2, UNK
  4. TRASTUZUMAB [Suspect]
     Dosage: 8 mg/kg, UNK
  5. TRASTUZUMAB [Suspect]
     Dosage: 6 mg/kg, UNK

REACTIONS (5)
  - Cardiac failure [Recovered/Resolved]
  - Ejection fraction decreased [Recovered/Resolved]
  - Cardiac septal defect [Recovered/Resolved]
  - Diastolic dysfunction [Recovered/Resolved]
  - Exposure during pregnancy [Unknown]
